FAERS Safety Report 5236860-4 (Version None)
Quarter: 2007Q1

REPORT INFORMATION
  Report Type: 
  Country: None (occurrence: None)
  Receive Date: 20070213
  Receipt Date: 20070206
  Transmission Date: 20070707
  Serious: Yes (Hospitalization)
  Sender: FDA-Public Use
  Company Number: US-JNJFOC-20070202212

PATIENT
  Sex: Male
  Weight: 56.7 kg

DRUGS (2)
  1. DURAGESIC-100 [Suspect]
     Indication: NECK PAIN
     Route: 062
  2. PERCOCET [Concomitant]
     Indication: NECK PAIN
     Dosage: 1 EVERY 4-6 HOURS AS NEEDED
     Route: 048

REACTIONS (8)
  - ANXIETY [None]
  - ARTHRITIS [None]
  - DEPRESSION [None]
  - FATIGUE [None]
  - FEELING ABNORMAL [None]
  - LOCALISED INFECTION [None]
  - SPINAL COLUMN STENOSIS [None]
  - WEIGHT INCREASED [None]
